FAERS Safety Report 25270026 (Version 1)
Quarter: 2025Q2

REPORT INFORMATION
  Report Type: Spontaneous
  Country: JP (occurrence: JP)
  Receive Date: 20250505
  Receipt Date: 20250505
  Transmission Date: 20250716
  Serious: Yes (Hospitalization, Other)
  Sender: BRISTOL-MYERS SQUIBB COMPANY
  Company Number: JP-TAIHO-2025-004457

PATIENT
  Age: 81 Year
  Sex: Male
  Weight: 49 kg

DRUGS (25)
  1. ABRAXANE [Suspect]
     Active Substance: PACLITAXEL
     Indication: Pancreatic carcinoma
     Dosage: 140 MG/DAY; ON DAYS 1, 8, AND 15 OF EACH 28-DAY CYCLE; WITH SUSPENSION; CYCLE 1?DAILY DOSE: 140 MILL
     Route: 041
     Dates: start: 20240904
  2. ABRAXANE [Suspect]
     Active Substance: PACLITAXEL
     Dosage: DOSE NOT REPORTED/DAY; 80% DOSE; ON DAYS 1, 8, AND 15 OF EACH 28-DAY CYCLE; CYCLE 2
     Route: 041
     Dates: start: 20241003
  3. ABRAXANE [Suspect]
     Active Substance: PACLITAXEL
     Dosage: 140 MG/DAY; ON DAYS 1, 8, AND 15 OF EACH 28-DAY CYCLE; WITH SUSPENSION; CYCLE 1?DAILY DOSE: 140 MILL
     Route: 041
     Dates: start: 20240911
  4. ABRAXANE [Suspect]
     Active Substance: PACLITAXEL
     Dosage: DOSE NOT REPORTED/DAY; 80% DOSE; ON DAYS 1, 8, AND 15 OF EACH 28-DAY CYCLE; CYCLE 2
     Route: 041
     Dates: start: 20241010
  5. GEMCITABINE HYDROCHLORIDE [Suspect]
     Active Substance: GEMCITABINE HYDROCHLORIDE
     Indication: Pancreatic carcinoma
     Dosage: 1100 MG/DAY; ON DAYS 1, 8, AND 15 OF EACH 28-DAY CYCLE; WITH SUSPENSION; CYCLE 1?DAILY DOSE: 1100 MI
     Route: 041
     Dates: start: 20240904
  6. GEMCITABINE HYDROCHLORIDE [Suspect]
     Active Substance: GEMCITABINE HYDROCHLORIDE
     Dosage: DOSE NOT REPORTED/DAY; 80% DOSE; ON DAYS 1, 8, AND 15 OF EACH 28-DAY CYCLE; CYCLE 2
     Route: 041
     Dates: start: 20241003
  7. GEMCITABINE HYDROCHLORIDE [Suspect]
     Active Substance: GEMCITABINE HYDROCHLORIDE
     Dosage: 1100 MG/DAY; ON DAYS 1, 8, AND 15 OF EACH 28-DAY CYCLE; WITH SUSPENSION; CYCLE 1?DAILY DOSE: 1100 MI
     Route: 041
     Dates: start: 20240911
  8. GEMCITABINE HYDROCHLORIDE [Suspect]
     Active Substance: GEMCITABINE HYDROCHLORIDE
     Dosage: DOSE NOT REPORTED/DAY; 80% DOSE; ON DAYS 1, 8, AND 15 OF EACH 28-DAY CYCLE; CYCLE 2
     Route: 041
     Dates: start: 20241010
  9. DEXAMETHASONE SODIUM PHOSPHATE [Concomitant]
     Active Substance: DEXAMETHASONE SODIUM PHOSPHATE
     Indication: Product used for unknown indication
     Route: 041
     Dates: start: 20240904, end: 20241010
  10. PALONOSETRON HYDROCHLORIDE [Concomitant]
     Active Substance: PALONOSETRON HYDROCHLORIDE
     Indication: Product used for unknown indication
     Route: 041
     Dates: start: 20240904, end: 20241010
  11. EZETIMIBE [Concomitant]
     Active Substance: EZETIMIBE
     Indication: Product used for unknown indication
     Route: 048
  12. ESOMEPRAZOLE [Concomitant]
     Active Substance: ESOMEPRAZOLE
     Indication: Product used for unknown indication
     Route: 048
  13. ENTRESTO [Concomitant]
     Active Substance: SACUBITRIL\VALSARTAN
     Indication: Product used for unknown indication
     Dosage: NUMBER OF UNITS IN THE INTERVAL-1 DAY
     Route: 048
  14. ENTRESTO [Concomitant]
     Active Substance: SACUBITRIL\VALSARTAN
     Dosage: NUMBER OF UNITS IN THE INTERVAL-1 DAY
     Route: 048
     Dates: start: 20241015
  15. KALLIDINOGENASE [Concomitant]
     Active Substance: KALLIDINOGENASE
     Indication: Product used for unknown indication
     Route: 048
  16. CLOPIDOGREL [Concomitant]
     Active Substance: CLOPIDOGREL BISULFATE
     Indication: Product used for unknown indication
     Route: 048
  17. ASPIRIN [Concomitant]
     Active Substance: ASPIRIN
     Indication: Product used for unknown indication
     Route: 048
  18. BISOPROLOL FUMARATE [Concomitant]
     Active Substance: BISOPROLOL FUMARATE
     Indication: Product used for unknown indication
     Route: 048
  19. HYDROCHLOROTHIAZIDE [Concomitant]
     Active Substance: HYDROCHLOROTHIAZIDE
     Indication: Product used for unknown indication
     Route: 048
  20. MOSAPRIDE CITRATE [Concomitant]
     Active Substance: MOSAPRIDE CITRATE
     Indication: Product used for unknown indication
     Route: 048
  21. MOVICOL [Concomitant]
     Active Substance: POLYETHYLENE GLYCOL 3350\POTASSIUM CHLORIDE\SODIUM BICARBONATE\SODIUM CHLORIDE
     Indication: Product used for unknown indication
     Route: 048
  22. ROSUVASTATIN CALCIUM [Concomitant]
     Active Substance: ROSUVASTATIN CALCIUM
     Indication: Product used for unknown indication
     Route: 048
  23. MASHININGANRYO [Concomitant]
     Indication: Product used for unknown indication
     Route: 048
  24. CEFEPIME [Concomitant]
     Active Substance: CEFEPIME HYDROCHLORIDE
     Indication: Product used for unknown indication
     Dates: start: 20240915
  25. FILGRASTIM [Concomitant]
     Active Substance: FILGRASTIM
     Indication: Product used for unknown indication
     Dates: start: 20240915

REACTIONS (6)
  - Neutrophil count decreased [Recovered/Resolved]
  - Cholangitis [Unknown]
  - Syncope [Unknown]
  - Dizziness [Unknown]
  - Haemoglobin decreased [Unknown]
  - Febrile neutropenia [Unknown]

NARRATIVE: CASE EVENT DATE: 20240915
